FAERS Safety Report 20012169 (Version 1)
Quarter: 2021Q4

REPORT INFORMATION
  Report Type: Spontaneous
  Country: US (occurrence: US)
  Receive Date: 20211029
  Receipt Date: 20211029
  Transmission Date: 20220303
  Serious: Yes (Other)
  Sender: FDA-Public Use
  Company Number: US-JNJFOC-20211045226

PATIENT

DRUGS (1)
  1. ACETAMINOPHEN [Suspect]
     Active Substance: ACETAMINOPHEN
     Indication: Product used for unknown indication
     Route: 065

REACTIONS (15)
  - Hepatic failure [Unknown]
  - Coma [Unknown]
  - Hepatic enzyme increased [Unknown]
  - Overdose [Unknown]
  - Toxicity to various agents [Unknown]
  - Liver function test abnormal [Unknown]
  - Decreased appetite [Unknown]
  - Acidosis [Unknown]
  - Electrolyte imbalance [Unknown]
  - Blood bilirubin increased [Unknown]
  - Coagulopathy [Unknown]
  - Abdominal pain [Unknown]
  - Tachycardia [Unknown]
  - Anion gap increased [Unknown]
  - Hypotension [Unknown]
